FAERS Safety Report 14819643 (Version 1)
Quarter: 2018Q2

REPORT INFORMATION
  Report Type: Spontaneous
  Country: FR (occurrence: FR)
  Receive Date: 20180427
  Receipt Date: 20180427
  Transmission Date: 20180711
  Serious: Yes (Other)
  Sender: FDA-Public Use
  Company Number: FR-MERCK KGAA-2046728

PATIENT
  Age: 46 Year
  Sex: Male

DRUGS (1)
  1. NOVOTHYROX [Suspect]
     Active Substance: LEVOTHYROXINE SODIUM
     Indication: PRODUCT USED FOR UNKNOWN INDICATION

REACTIONS (18)
  - Weight increased [None]
  - Blood thyroid stimulating hormone increased [None]
  - Headache [None]
  - Blood cholesterol increased [None]
  - Blood triglycerides increased [None]
  - Mean cell haemoglobin increased [None]
  - Mood swings [None]
  - Dizziness [None]
  - Ageusia [None]
  - Irritability [None]
  - Diarrhoea [None]
  - Blood uric acid increased [None]
  - Hyperhidrosis [None]
  - Abdominal pain upper [None]
  - Decreased activity [None]
  - Fatigue [None]
  - Muscle spasms [None]
  - Insomnia [None]

NARRATIVE: CASE EVENT DATE: 20170826
